FAERS Safety Report 4427306-4 (Version None)
Quarter: 2004Q3

REPORT INFORMATION
  Report Type: 
  Country: None (occurrence: None)
  Receive Date: 20040811
  Receipt Date: 20040729
  Transmission Date: 20050211
  Serious: Yes (Hospitalization)
  Sender: FDA-Public Use
  Company Number: 2004-BP-06220RO

PATIENT
  Age: 42 Year
  Sex: Female
  Weight: 69 kg

DRUGS (5)
  1. DEXAMETHASONE [Suspect]
  2. THALOMID [Suspect]
     Indication: METASTASES TO CENTRAL NERVOUS SYSTEM
     Dosage: 400-1000 MG QHS, PO
     Route: 048
     Dates: start: 20030721, end: 20030806
  3. THALOMID [Suspect]
     Indication: METASTASES TO CENTRAL NERVOUS SYSTEM
     Dosage: 400-1000 MG QHS, PO
     Route: 048
     Dates: start: 20030814, end: 20031002
  4. THALOMID [Suspect]
     Indication: METASTASES TO CENTRAL NERVOUS SYSTEM
     Dosage: 400-1000 MG QHS, PO
     Route: 048
     Dates: start: 20031001, end: 20040413
  5. DILANTIN [Concomitant]

REACTIONS (7)
  - ANTICONVULSANT DRUG LEVEL BELOW THERAPEUTIC [None]
  - BLOOD ELECTROLYTES DECREASED [None]
  - DEHYDRATION [None]
  - GASTROINTESTINAL FUNGAL INFECTION [None]
  - HYPOKALAEMIA [None]
  - NAUSEA [None]
  - VOMITING [None]
